FAERS Safety Report 19485321 (Version 2)
Quarter: 2021Q3

REPORT INFORMATION
  Report Type: Report from Study
  Country: US (occurrence: US)
  Receive Date: 20210702
  Receipt Date: 20210726
  Transmission Date: 20211014
  Serious: Yes (Death, Hospitalization, Other)
  Sender: FDA-Public Use
  Company Number: US-SA-2017SA129923

PATIENT
  Age: 60 Year
  Sex: Female
  Weight: 104 kg

DRUGS (2)
  1. TERIFLUNOMIDE. [Suspect]
     Active Substance: TERIFLUNOMIDE
     Indication: MULTIPLE SCLEROSIS
     Dosage: 14 MG, QD
     Route: 048
     Dates: start: 20170705, end: 20170722
  2. LORAZEPAM. [Concomitant]
     Active Substance: LORAZEPAM
     Dosage: UNK
     Dates: end: 20170630

REACTIONS (11)
  - Death [Fatal]
  - Lower respiratory tract infection [Not Recovered/Not Resolved]
  - Hospitalisation [Not Recovered/Not Resolved]
  - Headache [Recovered/Resolved]
  - Lower limb fracture [Unknown]
  - Blood glucose decreased [Not Recovered/Not Resolved]
  - Nausea [Recovered/Resolved]
  - Blood glucose increased [Not Recovered/Not Resolved]
  - Subdural haemorrhage [Unknown]
  - Head injury [Unknown]
  - Fall [Unknown]

NARRATIVE: CASE EVENT DATE: 201707
